FAERS Safety Report 13939188 (Version 1)
Quarter: 2017Q3

REPORT INFORMATION
  Report Type: Report from Study
  Country: US (occurrence: US)
  Receive Date: 20170906
  Receipt Date: 20170906
  Transmission Date: 20171127
  Serious: Yes (Other)
  Sender: FDA-Public Use
  Company Number: PHEH2017US028521

PATIENT
  Sex: Female

DRUGS (1)
  1. GILENYA [Suspect]
     Active Substance: FINGOLIMOD HYDROCHLORIDE
     Indication: RELAPSING-REMITTING MULTIPLE SCLEROSIS
     Dosage: UNK
     Route: 048
     Dates: start: 20120128

REACTIONS (7)
  - Multiple sclerosis [Unknown]
  - Asthenia [Unknown]
  - Cognitive disorder [Unknown]
  - Aphasia [Unknown]
  - Bladder disorder [Unknown]
  - Memory impairment [Unknown]
  - Multiple sclerosis relapse [Unknown]
